FAERS Safety Report 22272241 (Version 1)
Quarter: 2023Q2

REPORT INFORMATION
  Report Type: Other
  Country: CH (occurrence: CH)
  Receive Date: 20230502
  Receipt Date: 20230502
  Transmission Date: 20230722
  Serious: Yes (Hospitalization, Other)
  Sender: FDA-Public Use
  Company Number: CH-GE HEALTHCARE-2023CSU003027

PATIENT
  Age: 92 Year
  Sex: Male

DRUGS (21)
  1. VISIPAQUE [Suspect]
     Active Substance: IODIXANOL
     Indication: Angiogram
     Dosage: 80 ML, SINGLE
     Route: 041
     Dates: start: 20230328, end: 20230328
  2. BUPRENORPHINE HYDROCHLORIDE [Suspect]
     Active Substance: BUPRENORPHINE HYDROCHLORIDE
     Dosage: 0.1 MG, QD
     Route: 060
     Dates: start: 20230316, end: 20230330
  3. BUPRENORPHINE HYDROCHLORIDE [Suspect]
     Active Substance: BUPRENORPHINE HYDROCHLORIDE
     Dosage: AS NECESSARY
     Route: 060
     Dates: start: 20230310, end: 20230330
  4. LINAGLIPTIN [Suspect]
     Active Substance: LINAGLIPTIN
     Indication: Diabetes mellitus
     Dosage: 5 MG, QD
     Route: 048
     Dates: start: 20230317, end: 20230330
  5. DOTAREM [Suspect]
     Active Substance: GADOTERATE MEGLUMINE
     Indication: Magnetic resonance imaging
     Dosage: IN TOTAL
     Route: 041
     Dates: start: 20230314, end: 20230314
  6. ENOXAPARIN SODIUM [Suspect]
     Active Substance: ENOXAPARIN SODIUM
     Indication: Atrial fibrillation
     Dosage: 40 MG, QD
     Route: 058
     Dates: start: 20230309, end: 20230314
  7. CALCIPARINE [Suspect]
     Active Substance: HEPARIN CALCIUM
     Indication: Atrial fibrillation
     Dosage: 5000 IU, BID
     Route: 058
     Dates: start: 20230317, end: 20230323
  8. CALCIPARINE [Suspect]
     Active Substance: HEPARIN CALCIUM
     Dosage: 5000 IU, BID
     Route: 058
     Dates: start: 20230301, end: 20230305
  9. HEPARIN [Suspect]
     Active Substance: HEPARIN SODIUM
     Indication: Venous thrombosis limb
     Dosage: 20000 IU, QD
     Route: 041
     Dates: start: 20230324, end: 20230331
  10. ATORVASTATIN [Concomitant]
     Active Substance: ATORVASTATIN
     Dosage: UNK
  11. NEXIUM [Concomitant]
     Active Substance: ESOMEPRAZOLE MAGNESIUM
     Dosage: UNK
  12. AMLODIPINE BESYLATE [Concomitant]
     Active Substance: AMLODIPINE BESYLATE
     Dosage: 10 UNK
     Dates: start: 20230316
  13. AMLODIPINE BESYLATE [Concomitant]
     Active Substance: AMLODIPINE BESYLATE
     Dosage: 5 MG
  14. MOXONIDINE [Concomitant]
     Active Substance: MOXONIDINE
     Dosage: UNK
  15. CIPRALEX [Concomitant]
     Active Substance: ESCITALOPRAM OXALATE
     Dosage: UNK
  16. DAFALGAN [Concomitant]
     Active Substance: ACETAMINOPHEN
     Dosage: 3 GM, QD
     Dates: start: 20230310
  17. DAFALGAN [Concomitant]
     Active Substance: ACETAMINOPHEN
     Dosage: 2 GM, QD
  18. ASPIRIN [Concomitant]
     Active Substance: ASPIRIN
     Dosage: UNK
  19. IRBESARTAN [Concomitant]
     Active Substance: IRBESARTAN
     Dosage: UNK
  20. TRAMADOL [Concomitant]
     Active Substance: TRAMADOL
     Dosage: UNK
  21. LERCANIDIPINE [Concomitant]
     Active Substance: LERCANIDIPINE
     Dosage: UNK

REACTIONS (2)
  - Eosinophilia [Recovered/Resolved]
  - Rash [Recovered/Resolved]

NARRATIVE: CASE EVENT DATE: 20230330
